FAERS Safety Report 4646810-7 (Version None)
Quarter: 2005Q2

REPORT INFORMATION
  Report Type: 
  Country: None (occurrence: None)
  Receive Date: 20050331
  Receipt Date: 20041203
  Transmission Date: 20051028
  Serious: No
  Sender: FDA-Public Use
  Company Number: 04P-163-0282166-00

PATIENT
  Age: 45 Year
  Sex: Female
  Weight: 91.6266 kg

DRUGS (12)
  1. HUMIRA [Suspect]
     Indication: RHEUMATOID ARTHRITIS
     Dosage: 40 MG, 1 IN 2 WK, SUBCUTANEOUS
     Route: 058
     Dates: start: 20030601
  2. CALCIUM CARBONATE [Concomitant]
  3. MULTI-VITAMINS [Concomitant]
  4. PREDNISONE [Concomitant]
  5. LANSOPRAZOLE [Concomitant]
  6. MAXZIDE [Concomitant]
  7. VENLAFAXINE HCL [Concomitant]
  8. ROSIGLITAZONE MALEATE [Concomitant]
  9. LEVOTHYROXINE SODIUM [Concomitant]
  10. ALPRAZOLAM [Concomitant]
  11. CHLORCON [Concomitant]
  12. NAPROSYN [Concomitant]

REACTIONS (2)
  - INJECTION SITE HAEMORRHAGE [None]
  - INJECTION SITE VESICLES [None]
